FAERS Safety Report 10574376 (Version 1)
Quarter: 2014Q4

REPORT INFORMATION
  Report Type: Spontaneous
  Country: US (occurrence: US)
  Receive Date: 20141110
  Receipt Date: 20141110
  Transmission Date: 20150529
  Serious: Yes (Hospitalization)
  Sender: FDA-Public Use
  Company Number: US-BAYER-2014-158174

PATIENT
  Age: 71 Year
  Sex: Female
  Weight: 51 kg

DRUGS (17)
  1. METOPROLOL [Concomitant]
     Active Substance: METOPROLOL
  2. DESONIDE. [Concomitant]
     Active Substance: DESONIDE
  3. FLUTICASONE [Concomitant]
     Active Substance: FLUTICASONE\FLUTICASONE PROPIONATE
  4. POLYETHYLENE GLYCOL [Concomitant]
     Active Substance: POLYETHYLENE GLYCOLS
  5. CALCIUM [Concomitant]
     Active Substance: CALCIUM
  6. VITAMIN D [Concomitant]
     Active Substance: CHOLECALCIFEROL
  7. MULTIVITAMIN [Concomitant]
     Active Substance: VITAMINS
  8. LOSARTAN [Concomitant]
     Active Substance: LOSARTAN
  9. PIMECROLIMUS [Concomitant]
     Active Substance: PIMECROLIMUS
  10. AMOXICILLIN. [Concomitant]
     Active Substance: AMOXICILLIN
  11. ACETAMINOPHEN. [Concomitant]
     Active Substance: ACETAMINOPHEN
  12. FOLIC ACID. [Concomitant]
     Active Substance: FOLIC ACID
  13. NAPROXEN. [Concomitant]
     Active Substance: NAPROXEN
  14. FEXOFENADINE [Concomitant]
     Active Substance: FEXOFENADINE\FEXOFENADINE HYDROCHLORIDE
  15. CIPRO [Suspect]
     Active Substance: CIPROFLOXACIN HYDROCHLORIDE
     Indication: ENTEROCOLITIS INFECTIOUS
  16. SULINDAC. [Concomitant]
     Active Substance: SULINDAC
  17. METHOTREXATE [Concomitant]
     Active Substance: METHOTREXATE

REACTIONS (2)
  - Enterocolitis infectious [None]
  - Nasopharyngitis [None]

NARRATIVE: CASE EVENT DATE: 20140801
